FAERS Safety Report 9331781 (Version 2)
Quarter: 2013Q3

REPORT INFORMATION
  Report Type: Spontaneous
  Country: US (occurrence: None)
  Receive Date: 20130603
  Receipt Date: 20130823
  Transmission Date: 20140515
  Serious: Yes (Other)
  Sender: FDA-Public Use
  Company Number: US-024963

PATIENT
  Age: 7 Year
  Sex: Male

DRUGS (8)
  1. BUSULFAN [Suspect]
     Indication: ACUTE MYELOID LEUKAEMIA
     Route: 042
  2. METRONIDAZOLE [Suspect]
     Indication: CLOSTRIDIAL INFECTION
     Route: 048
  3. CLOFARABINE (CLOFARABINE) [Concomitant]
  4. THIOTEPA (THIOTEPA) [Concomitant]
  5. RABBIT ANTITHYMOCYTE GLOBULIN (ANTITHYMOCYTE IMMUNOGLOBULIN (RABBIT)) [Concomitant]
  6. LORAZEPAM (LORAZEPAM) [Concomitant]
  7. TACROLIMUS (TACROLIMUS) [Concomitant]
  8. MYCOPHENOLATE MOFETIL (MYCOPHENOLIC ACID) [Concomitant]

REACTIONS (2)
  - Drug interaction [None]
  - Alanine aminotransferase increased [None]
